FAERS Safety Report 24614965 (Version 1)
Quarter: 2024Q4

REPORT INFORMATION
  Report Type: Spontaneous
  Country: CA (occurrence: CA)
  Receive Date: 20241113
  Receipt Date: 20241113
  Transmission Date: 20250115
  Serious: Yes (Other)
  Sender: ANI
  Company Number: CA-ANIPHARMA-2024-CA-004676

PATIENT
  Sex: Female
  Weight: 75 kg

DRUGS (8)
  1. CANDESARTAN CILEXETIL [Suspect]
     Active Substance: CANDESARTAN CILEXETIL
     Indication: Hypertension
     Route: 048
  2. ELIQUIS [Suspect]
     Active Substance: APIXABAN
  3. OMEPRAZOLE [Concomitant]
     Active Substance: OMEPRAZOLE
  4. BISOPROLOL FUMARATE [Concomitant]
     Active Substance: BISOPROLOL FUMARATE
  5. DIGOXIN [Concomitant]
     Active Substance: DIGOXIN
  6. JUBLIA [Concomitant]
     Active Substance: EFINACONAZOLE
  7. LASIX [Concomitant]
     Active Substance: FUROSEMIDE
  8. VYZULTA [Concomitant]
     Active Substance: LATANOPROSTENE BUNOD

REACTIONS (2)
  - Haemorrhage [Unknown]
  - Product use in unapproved indication [Unknown]
